FAERS Safety Report 11983883 (Version 3)
Quarter: 2016Q1

REPORT INFORMATION
  Report Type: Spontaneous
  Country: JP (occurrence: JP)
  Receive Date: 20160201
  Receipt Date: 20160307
  Transmission Date: 20160526
  Serious: Yes (Other)
  Sender: FDA-Public Use
  Company Number: JP-BAYER-2016-013290

PATIENT
  Age: 64 Year
  Sex: Female

DRUGS (2)
  1. STIVARGA [Suspect]
     Active Substance: REGORAFENIB
     Indication: GASTROINTESTINAL STROMAL TUMOUR
     Dosage: 160 MG, QD
     Route: 048
     Dates: start: 20151221, end: 201602
  2. MICARDIS [Concomitant]
     Active Substance: TELMISARTAN
     Indication: HYPERTENSION
     Route: 048

REACTIONS (3)
  - Palmar-plantar erythrodysaesthesia syndrome [Recovered/Resolved]
  - Hypothermia [Recovered/Resolved]
  - Blood pressure increased [None]

NARRATIVE: CASE EVENT DATE: 20160121
